FAERS Safety Report 9365913 (Version 2)
Quarter: 2013Q3

REPORT INFORMATION
  Report Type: Spontaneous
  Country: US (occurrence: US)
  Receive Date: 20130625
  Receipt Date: 20130711
  Transmission Date: 20140515
  Serious: Yes (Hospitalization, Other)
  Sender: FDA-Public Use
  Company Number: PHEH2013US013484

PATIENT
  Age: 69 Year
  Sex: Female
  Weight: 56.24 kg

DRUGS (6)
  1. RECLAST [Suspect]
     Indication: OSTEOPOROSIS
     Dosage: 5 MG, PER YEAR
     Route: 042
     Dates: start: 2012
  2. RECLAST [Suspect]
     Dosage: 5 MG, PER YEAR
     Route: 042
     Dates: start: 20130510
  3. LOSARTAN/HYDROCHLOORTHIAZIDE [Concomitant]
     Indication: HYPERTENSION
     Dosage: 100/25 MG
     Route: 048
  4. GABAPENTIN [Concomitant]
     Dosage: 300 MG, DAILY
     Route: 048
  5. SIMVASTATIN [Concomitant]
     Indication: HYPERLIPIDAEMIA
     Dosage: 20 MG, DAILY
     Route: 048
  6. OMEPRAZOLE [Concomitant]
     Indication: GASTROOESOPHAGEAL REFLUX DISEASE
     Dosage: 20 MG, DAILY
     Route: 048

REACTIONS (6)
  - Hyponatraemia [Recovered/Resolved]
  - Convulsion [Recovered/Resolved]
  - Spinal compression fracture [Not Recovered/Not Resolved]
  - Blood potassium decreased [Unknown]
  - Blood chloride increased [Unknown]
  - Blood phosphorus decreased [Unknown]
